FAERS Safety Report 5309345-4 (Version None)
Quarter: 2007Q2

REPORT INFORMATION
  Report Type: 
  Country: None (occurrence: None)
  Receive Date: 20070427
  Receipt Date: 20070412
  Transmission Date: 20071010
  Serious: Yes (Other)
  Sender: FDA-Public Use
  Company Number: PHEH2007US05212

PATIENT
  Age: 48 Year
  Sex: Female
  Weight: 82.539 kg

DRUGS (1)
  1. ZELNORM [Suspect]
     Indication: IRRITABLE BOWEL SYNDROME
     Dosage: 6 MG, BID
     Route: 048
     Dates: start: 20061115, end: 20070212

REACTIONS (3)
  - ABDOMINAL PAIN UPPER [None]
  - CATHETERISATION CARDIAC [None]
  - CHEST PAIN [None]
